FAERS Safety Report 4380099-1 (Version None)
Quarter: 2004Q2

REPORT INFORMATION
  Report Type: 
  Country: None (occurrence: None)
  Receive Date: 20040614
  Receipt Date: 20040226
  Transmission Date: 20050107
  Serious: No
  Sender: FDA-Public Use
  Company Number: M04-341-051

PATIENT
  Sex: Male

DRUGS (1)
  1. VELCADE [Suspect]

REACTIONS (3)
  - DIZZINESS [None]
  - GAIT DISTURBANCE [None]
  - ORTHOSTATIC HYPOTENSION [None]
